FAERS Safety Report 11621717 (Version 1)
Quarter: 2015Q4

REPORT INFORMATION
  Report Type: Spontaneous
  Country: FI (occurrence: FI)
  Receive Date: 20151013
  Receipt Date: 20151013
  Transmission Date: 20160304
  Serious: Yes (Other)
  Sender: FDA-Public Use
  Company Number: FI-AMGEN-FINSP2015104575

PATIENT
  Age: 78 Year
  Sex: Male

DRUGS (7)
  1. JEVTANA [Concomitant]
     Active Substance: CABAZITAXEL
     Indication: DISEASE PROGRESSION
     Dosage: X 6, X 3
  2. XGEVA [Suspect]
     Active Substance: DENOSUMAB
     Indication: METASTASES TO BONE
     Dosage: UNK
     Route: 065
  3. XTANDI [Concomitant]
     Active Substance: ENZALUTAMIDE
  4. ZYTIGA [Concomitant]
     Active Substance: ABIRATERONE ACETATE
  5. BICALUTAMIDE. [Concomitant]
     Active Substance: BICALUTAMIDE
  6. PREDNISON [Concomitant]
     Active Substance: PREDNISONE
  7. ENANTON [Concomitant]
     Active Substance: LEUPROLIDE ACETATE

REACTIONS (4)
  - Osteonecrosis of jaw [Unknown]
  - Haematuria [Unknown]
  - Hydronephrosis [Unknown]
  - Disease progression [Unknown]
